FAERS Safety Report 9867304 (Version 1)
Quarter: 2014Q1

REPORT INFORMATION
  Report Type: Spontaneous
  Country: BR (occurrence: BR)
  Receive Date: 20140204
  Receipt Date: 20140204
  Transmission Date: 20141002
  Serious: Yes (Hospitalization)
  Sender: FDA-Public Use
  Company Number: BR-ELI_LILLY_AND_COMPANY-BR201401011245

PATIENT
  Age: 69 Year
  Sex: Male

DRUGS (7)
  1. HUMULIN N [Suspect]
     Indication: TYPE 2 DIABETES MELLITUS
     Dosage: 15 IU, EACH EVENING
     Route: 058
     Dates: start: 20131016
  2. HUMULIN N [Suspect]
     Dosage: 15 IU, BID
     Route: 058
  3. HUMULIN N [Suspect]
     Dosage: 15 IU, TID
     Route: 058
  4. AMLODIPINE [Concomitant]
     Indication: CARDIAC DISORDER
     Dosage: 10 MG, QD
     Route: 065
  5. CARVEDILOL [Concomitant]
     Indication: CARDIAC DISORDER
     Dosage: 12.5 MG, QD
     Route: 065
  6. PLAGREL [Concomitant]
     Indication: CARDIAC DISORDER
     Dosage: 75 MG, QD
     Route: 065
  7. KOMBIGLYZE [Concomitant]
     Indication: DIABETES MELLITUS
     Dosage: UNK, UNKNOWN
     Route: 065

REACTIONS (2)
  - Blood glucose increased [Recovered/Resolved]
  - Syncope [Recovered/Resolved]
